FAERS Safety Report 8607391-6 (Version None)
Quarter: 2012Q3

REPORT INFORMATION
  Report Type: 
  Country: None (occurrence: None)
  Receive Date: 20120821
  Receipt Date: 20120810
  Transmission Date: 20120928
  Serious: Yes (Hospitalization)
  Sender: FDA-Public Use
  Company Number: US-BAYER-2012-062530

PATIENT
  Age: 21 Year
  Sex: Female

DRUGS (6)
  1. ACYCLOVIR [Concomitant]
     Indication: HERPES SIMPLEX
     Dosage: UNK
  2. YAZ [Suspect]
     Indication: CONTRACEPTION
     Dosage: UNK
     Dates: start: 20071101, end: 20110101
  3. YAZ [Suspect]
     Indication: DYSFUNCTIONAL UTERINE BLEEDING
  4. YAZ [Suspect]
     Indication: DYSMENORRHOEA
  5. YASMIN [Suspect]
     Dosage: DAILY
     Route: 048
     Dates: start: 20071101, end: 20110101
  6. ZYRTEC [Concomitant]
     Indication: HYPERSENSITIVITY
     Dosage: UNK UNK, PRN

REACTIONS (3)
  - PULMONARY EMBOLISM [None]
  - PELVIC VENOUS THROMBOSIS [None]
  - INJURY [None]
